FAERS Safety Report 7327412-0 (Version None)
Quarter: 2011Q1

REPORT INFORMATION
  Report Type: 
  Country: None (occurrence: None)
  Receive Date: 20110303
  Receipt Date: 20110223
  Transmission Date: 20110831
  Serious: Yes (Other)
  Sender: FDA-Public Use
  Company Number: US-ASTRAZENECA-2007UW02036

PATIENT
  Age: 58 Year
  Sex: Female
  Weight: 104.8 kg

DRUGS (33)
  1. SEROQUEL [Suspect]
     Indication: MENTAL DISORDER
     Route: 048
     Dates: start: 20020319, end: 20070201
  2. SEROQUEL [Suspect]
     Indication: ANXIETY
     Route: 048
     Dates: start: 20020319, end: 20070201
  3. SEROQUEL [Suspect]
     Dosage: 25 MG - 150 MG
     Route: 048
     Dates: start: 20020522
  4. NASONEX [Concomitant]
  5. PAXIL [Concomitant]
     Route: 048
     Dates: start: 20041203
  6. NASACORT AQ [Concomitant]
  7. MIRALAX [Concomitant]
     Indication: BOWEL MOVEMENT IRREGULARITY
     Dosage: 01 PACKET Q DAY
     Route: 048
     Dates: start: 20041203
  8. SEROQUEL [Suspect]
     Dosage: 25 MG QAM AND 75 MG QHS
     Route: 048
     Dates: start: 20041203
  9. PREVACID [Concomitant]
  10. ULTRAM [Concomitant]
  11. LEVAQUIN [Concomitant]
  12. LORATADINE [Concomitant]
     Route: 048
     Dates: start: 20041203
  13. MIRTAZAPINE [Concomitant]
     Route: 048
     Dates: start: 20041203
  14. SEROQUEL [Suspect]
     Dosage: 25 MG - 150 MG
     Route: 048
     Dates: start: 20020522
  15. VIOXX [Concomitant]
  16. INSULIN [Concomitant]
  17. ALBUTEROL [Concomitant]
  18. LIPITOR [Concomitant]
  19. SEROQUEL [Suspect]
     Dosage: 25 MG - 150 MG
     Route: 048
     Dates: start: 20020522
  20. FLOVENT [Concomitant]
  21. HYDROCHLOROTHIAZIDE [Concomitant]
     Route: 048
     Dates: start: 20041203
  22. SINGULAIR [Concomitant]
     Route: 048
     Dates: start: 20041203
  23. VERAPAMIL [Concomitant]
  24. SEROQUEL [Suspect]
     Dosage: 25 MG QAM AND 75 MG QHS
     Route: 048
     Dates: start: 20041203
  25. SEROQUEL [Suspect]
     Dosage: 25 MG QAM AND 75 MG QHS
     Route: 048
     Dates: start: 20041203
  26. LISINOPRIL [Concomitant]
     Route: 048
     Dates: start: 20041203
  27. ATIVAN [Concomitant]
  28. DIOVAN HCT [Concomitant]
  29. SEROQUEL [Suspect]
     Indication: DEPRESSION
     Route: 048
     Dates: start: 20020319, end: 20070201
  30. PROTONIX [Concomitant]
     Route: 048
     Dates: start: 20041203
  31. ALLOPURINOL [Concomitant]
     Route: 048
     Dates: start: 20041203
  32. PREDNISONE TAB [Concomitant]
  33. REGLAN [Concomitant]
     Dosage: 10 MG QAC AND QHS
     Route: 048
     Dates: start: 20041203

REACTIONS (13)
  - DIABETIC NEUROPATHY [None]
  - ABDOMINAL PAIN [None]
  - TYPE 2 DIABETES MELLITUS [None]
  - TYPE 1 DIABETES MELLITUS [None]
  - ABDOMINAL DISCOMFORT [None]
  - METABOLIC SYNDROME [None]
  - OBESITY [None]
  - BLOOD TRIGLYCERIDES INCREASED [None]
  - CHEST PAIN [None]
  - EYE DISORDER [None]
  - BLOOD CHOLESTEROL INCREASED [None]
  - WEIGHT INCREASED [None]
  - HYPERLIPIDAEMIA [None]
